FAERS Safety Report 11831778 (Version 2)
Quarter: 2015Q4

REPORT INFORMATION
  Report Type: Spontaneous
  Country: ES (occurrence: ES)
  Receive Date: 20151214
  Receipt Date: 20151217
  Transmission Date: 20160305
  Serious: Yes (Hospitalization)
  Sender: FDA-Public Use
  Company Number: ES-EISAI MEDICAL RESEARCH-EC-2015-012664

PATIENT
  Age: 73 Year
  Sex: Female
  Weight: 55 kg

DRUGS (4)
  1. FYCOMPA [Suspect]
     Active Substance: PERAMPANEL
     Route: 048
     Dates: start: 20150728
  2. LYRICA [Suspect]
     Active Substance: PREGABALIN
     Indication: EPILEPSY
     Dosage: UNKNOWN
     Route: 048
     Dates: start: 20150710, end: 20150728
  3. FYCOMPA [Suspect]
     Active Substance: PERAMPANEL
     Indication: EPILEPSY
     Dosage: UNKNOWN
     Route: 048
     Dates: start: 201403, end: 201409
  4. SPECTRACEF [Concomitant]
     Active Substance: CEFDITOREN PIVOXIL
     Indication: PNEUMONIA
     Route: 048
     Dates: start: 20150710, end: 20150724

REACTIONS (1)
  - Dermatitis bullous [Recovering/Resolving]

NARRATIVE: CASE EVENT DATE: 20150801
